FAERS Safety Report 9400116 (Version 1)
Quarter: 2013Q2

REPORT INFORMATION
  Report Type: Spontaneous
  Country: US (occurrence: None)
  Receive Date: 20130618
  Receipt Date: 20130618
  Transmission Date: 20140414
  Serious: Yes (Death)
  Sender: FDA-Public Use
  Company Number: DSA_60749_2012

PATIENT
  Age: 11 Year
  Sex: Male

DRUGS (2)
  1. ELIDEL [Suspect]
     Indication: DERMATITIS ATOPIC
     Dosage: STOPPED
  2. IMURAN [Suspect]

REACTIONS (2)
  - Autoimmune disorder [None]
  - Gastrointestinal disorder [None]
